FAERS Safety Report 4314217-8 (Version None)
Quarter: 2004Q1

REPORT INFORMATION
  Report Type: 
  Country: None (occurrence: None)
  Receive Date: 20040304
  Receipt Date: 20030716
  Transmission Date: 20041129
  Serious: No
  Sender: FDA-Public Use
  Company Number: 201643

PATIENT
  Age: 9 Year
  Sex: Male
  Weight: 20.9 kg

DRUGS (1)
  1. NUTROPIN AQ [Suspect]
     Indication: DRUG USE FOR UNKNOWN INDICATION
     Dosage: QD, SUBCUTANEOUS
     Route: 058
     Dates: start: 20011207, end: 20021021

REACTIONS (1)
  - SLIPPED FEMORAL EPIPHYSIS [None]
